FAERS Safety Report 7197461-4 (Version None)
Quarter: 2010Q4

REPORT INFORMATION
  Report Type: 
  Country: None (occurrence: None)
  Receive Date: 20101208
  Receipt Date: 20101126
  Transmission Date: 20110411
  Serious: Yes (Hospitalization, Other)
  Sender: FDA-Public Use
  Company Number: WAES 1012USA00169

PATIENT
  Age: 79 Year
  Sex: Male

DRUGS (17)
  1. VYTORIN [Suspect]
     Indication: ACUTE CORONARY SYNDROME
     Dosage: 10/40 MG/DAILY PO
     Route: 048
     Dates: start: 20061115
  2. PLACEBO [Suspect]
     Indication: ACUTE CORONARY SYNDROME
     Dosage: PO ; PO
     Route: 048
     Dates: start: 20061115
  3. PLACEBO [Suspect]
     Indication: ACUTE CORONARY SYNDROME
     Dosage: PO ; PO
     Route: 048
     Dates: start: 20061115
  4. DANCOR [Concomitant]
  5. DEPONIT [Concomitant]
  6. EFFEXOR [Concomitant]
  7. LYRICA [Concomitant]
  8. MOVICOL [Concomitant]
  9. PANTOZOL [Concomitant]
  10. AMLODIPINE [Concomitant]
  11. ASPIRIN [Concomitant]
  12. ATORVASTATIN CALCIUM [Concomitant]
  13. CLOPIDOGREL BESYLATE [Concomitant]
  14. LOSARTAN POTASSIUM-HCTZ [Concomitant]
  15. METFORMIN [Concomitant]
  16. METOPROLOL [Concomitant]
  17. TORSEMIDE [Concomitant]

REACTIONS (1)
  - COLON CANCER [None]
